FAERS Safety Report 19151147 (Version 6)
Quarter: 2022Q1

REPORT INFORMATION
  Report Type: Spontaneous
  Country: US (occurrence: US)
  Receive Date: 20210419
  Receipt Date: 20220106
  Transmission Date: 20220423
  Serious: Yes (Disabling, Other)
  Sender: FDA-Public Use
  Company Number: US-SA-SAC20210415000109

PATIENT
  Age: 61 Year
  Sex: Male

DRUGS (10)
  1. DUPIXENT [Suspect]
     Active Substance: DUPILUMAB
     Indication: Dermatitis atopic
     Dosage: 300 MG, QOW
     Route: 058
     Dates: start: 20190815
  2. DUPIXENT [Suspect]
     Active Substance: DUPILUMAB
     Indication: Eczema
     Dosage: 300 MG, BIM
  3. DUPIXENT [Suspect]
     Active Substance: DUPILUMAB
     Dosage: 300 MG
     Route: 058
     Dates: start: 20200122, end: 202005
  4. ASPIRIN [Concomitant]
     Active Substance: ASPIRIN
     Dosage: 81 MG
  5. TEGRETOL [Concomitant]
     Active Substance: CARBAMAZEPINE
  6. JARDIANCE [Concomitant]
     Active Substance: EMPAGLIFLOZIN
  7. NIFEDIPINE [Concomitant]
     Active Substance: NIFEDIPINE
  8. METOPROLOL [Concomitant]
     Active Substance: METOPROLOL
  9. LIBENZAPRIL [Concomitant]
     Active Substance: LIBENZAPRIL
     Dosage: UNK
  10. BENAZEPRIL [Concomitant]
     Active Substance: BENAZEPRIL HYDROCHLORIDE

REACTIONS (13)
  - Blindness [Not Recovered/Not Resolved]
  - Visual impairment [Unknown]
  - Cataract [Unknown]
  - Visual impairment [Unknown]
  - Asthenopia [Unknown]
  - Visual acuity reduced [Recovering/Resolving]
  - Maculopathy [Unknown]
  - Metamorphopsia [Unknown]
  - Vision blurred [Unknown]
  - Eye irritation [Unknown]
  - Dry eye [Unknown]
  - Product dose omission issue [Unknown]
  - Product use issue [Unknown]

NARRATIVE: CASE EVENT DATE: 20190801
